FAERS Safety Report 6466854-2 (Version None)
Quarter: 2009Q4

REPORT INFORMATION
  Report Type: 
  Country: None (occurrence: None)
  Receive Date: 20091202
  Receipt Date: 20091123
  Transmission Date: 20100525
  Serious: Yes (Hospitalization, Other)
  Sender: FDA-Public Use
  Company Number: US-ABBOTT-09P-163-0610471-00

PATIENT
  Sex: Female
  Weight: 99.88 kg

DRUGS (18)
  1. HUMIRA [Suspect]
     Indication: PSORIASIS
     Route: 058
  2. HUMIRA [Suspect]
     Indication: PSORIATIC ARTHROPATHY
  3. HUMIRA [Suspect]
     Indication: RHEUMATOID ARTHRITIS
  4. HUMIRA [Suspect]
     Indication: OSTEOARTHRITIS
  5. PREDNISONE TAB [Concomitant]
     Indication: COUGH
     Dosage: WAS USING 20MG TO 5MG QD
     Dates: start: 20091101
  6. SYNTHROID [Concomitant]
     Indication: HYPOTHYROIDISM
  7. METOPROLOL TARTRATE [Concomitant]
     Indication: HYPERTENSION
  8. BENICAR HCT [Concomitant]
     Indication: HYPERTENSION
  9. DICLOFENAC SODIUM [Concomitant]
     Indication: DRUG USE FOR UNKNOWN INDICATION
  10. CLONIDINE [Concomitant]
     Indication: DRUG USE FOR UNKNOWN INDICATION
     Dosage: DAILY AT HOUR OF SLEEP
     Route: 048
  11. FAMCICLOVIR [Concomitant]
     Indication: DRUG USE FOR UNKNOWN INDICATION
  12. LIPITOR [Concomitant]
     Indication: DRUG USE FOR UNKNOWN INDICATION
  13. FOLIC ACID [Concomitant]
     Indication: DRUG USE FOR UNKNOWN INDICATION
  14. PREMARIN [Concomitant]
     Indication: DRUG USE FOR UNKNOWN INDICATION
  15. DETROL LA [Concomitant]
     Indication: DRUG USE FOR UNKNOWN INDICATION
  16. NORCO [Concomitant]
     Indication: PAIN
  17. XYZAL [Concomitant]
     Indication: HYPERSENSITIVITY
  18. ADVAIR DISKUS 100/50 [Concomitant]
     Indication: ASTHMA

REACTIONS (9)
  - ABDOMINAL PAIN UPPER [None]
  - CHEST PAIN [None]
  - CLOSTRIDIAL INFECTION [None]
  - COUGH [None]
  - DIARRHOEA [None]
  - DYSPNOEA [None]
  - HYPERCHLORHYDRIA [None]
  - SLEEP DISORDER [None]
  - SUPRAVENTRICULAR TACHYCARDIA [None]
